FAERS Safety Report 15074226 (Version 3)
Quarter: 2018Q3

REPORT INFORMATION
  Report Type: Report from Study
  Country: US (occurrence: US)
  Receive Date: 20180627
  Receipt Date: 20180817
  Transmission Date: 20181010
  Serious: Yes (Other)
  Sender: FDA-Public Use
  Company Number: US-BAYER-2018-114755

PATIENT
  Age: 69 Year
  Sex: Male

DRUGS (2)
  1. STIVARGA [Suspect]
     Active Substance: REGORAFENIB
     Indication: COLON CANCER
     Dosage: 80 MG DAILY 21 DAYS ON 7 DAYS OFF
     Route: 048
     Dates: start: 20180611, end: 20180718
  2. STIVARGA [Suspect]
     Active Substance: REGORAFENIB
     Indication: COLON CANCER
     Dosage: 120 MG DAILY 21 DAYS ON 7 DAYS OFF
     Route: 048
     Dates: start: 20180719, end: 20180802

REACTIONS (17)
  - Weight decreased [Recovered/Resolved]
  - Abdominal discomfort [Recovered/Resolved]
  - Dysphonia [Not Recovered/Not Resolved]
  - Liver function test increased [None]
  - Off label use [None]
  - Diarrhoea [Recovered/Resolved]
  - Hypertension [None]
  - Bowel movement irregularity [Recovered/Resolved]
  - Abdominal pain [Recovering/Resolving]
  - Ocular icterus [None]
  - Fatigue [Recovered/Resolved]
  - Decreased appetite [Recovered/Resolved]
  - Early satiety [Recovered/Resolved]
  - Blood pressure increased [Recovered/Resolved]
  - Neuropathy peripheral [Recovered/Resolved]
  - Constipation [Recovered/Resolved]
  - Chest pain [None]

NARRATIVE: CASE EVENT DATE: 2018
